FAERS Safety Report 8413966-X (Version None)
Quarter: 2012Q2

REPORT INFORMATION
  Report Type: 
  Country: None (occurrence: None)
  Receive Date: 20120605
  Receipt Date: 20120528
  Transmission Date: 20120825
  Serious: Yes (Hospitalization)
  Sender: FDA-Public Use
  Company Number: GB-GENZYME-MOZO-1000702

PATIENT
  Age: 39 Year
  Weight: 89 kg

DRUGS (1)
  1. PLERIXAFOR [Suspect]
     Indication: HAEMATOPOIETIC STEM CELL MOBILISATION
     Dosage: 21 MG, UNK
     Route: 058
     Dates: start: 20090420, end: 20090420

REACTIONS (4)
  - VOMITING [None]
  - DIARRHOEA [None]
  - CHILLS [None]
  - HYPERSENSITIVITY [None]
